FAERS Safety Report 5649737-7 (Version None)
Quarter: 2008Q1

REPORT INFORMATION
  Report Type: 
  Country: None (occurrence: None)
  Receive Date: 20080304
  Receipt Date: 20080218
  Transmission Date: 20080703
  Serious: Yes (Life-Threatening)
  Sender: FDA-Public Use
  Company Number: DE-BOEHRINGER INGELHEIM GMBH, GERMANY-2008-DE-01034DE

PATIENT
  Sex: Female

DRUGS (50)
  1. LAXOBERAL [Suspect]
     Indication: CONSTIPATION
     Dates: start: 20050303, end: 20050308
  2. CLONIDINE [Suspect]
     Indication: HYPERTENSION
     Dosage: 1 X 1/4 AMPOULE
     Route: 042
     Dates: start: 20050310
  3. CLONIDINE HCL [Suspect]
     Indication: HYPERTENSION
     Route: 042
     Dates: start: 20050311, end: 20050314
  4. HETASTARCH IN SODIUM CHLORIDE [Suspect]
     Indication: ELECTROLYTE SUBSTITUTION THERAPY
     Dosage: 10 %AGE
     Route: 042
     Dates: start: 20050222, end: 20050308
  5. HETASTARCH IN SODIUM CHLORIDE [Suspect]
     Dosage: 4 X 125 ML; 10%AGE
     Route: 042
     Dates: start: 20050222, end: 20050308
  6. FENTANYL [Suspect]
     Indication: SEDATION
     Route: 042
     Dates: start: 20050222, end: 20050310
  7. MANNITOL 15% [Suspect]
     Indication: PROPHYLAXIS
     Dosage: 2 X 125 ML
     Route: 042
     Dates: start: 20050222, end: 20050311
  8. MANNITOL 15% [Suspect]
     Dosage: 4X125 ML
     Route: 042
     Dates: start: 20050222, end: 20050310
  9. ACETYLCYSTEINE [Suspect]
     Indication: MECHANICAL VENTILATION
     Dosage: 3 X 300 MG
     Route: 042
     Dates: start: 20050222
  10. ACETYLCYSTEINE [Suspect]
     Dosage: 2 X 300 MG
     Route: 042
     Dates: start: 20050222
  11. AMBROXOL NON-BI DRUG [Suspect]
     Indication: MECHANICAL VENTILATION
     Dosage: 2 X 30MG
     Route: 042
     Dates: start: 20050222
  12. MIDAZOLAM HCL [Suspect]
     Indication: SEDATION
     Route: 042
     Dates: start: 20050222, end: 20050310
  13. MIDAZOLAM HCL [Suspect]
     Route: 042
     Dates: start: 20050317, end: 20050317
  14. PANTOPRAZOLE SODIUM [Suspect]
     Indication: PROPHYLAXIS
     Route: 042
     Dates: start: 20050222
  15. PROPOFOL [Suspect]
     Indication: SEDATION
     Route: 042
     Dates: start: 20050222, end: 20050310
  16. EMBOLEX [Suspect]
     Indication: THROMBOSIS PROPHYLAXIS
     Route: 058
     Dates: start: 20050223
  17. TORSEMIDE [Suspect]
     Indication: OEDEMA
     Dosage: 1X5 MG; 2X5MG; 3X5 MG; 3X10MG; 2X10MG;
     Route: 042
     Dates: start: 20050224
  18. NOREPINEPHRINE BITARTRATE [Suspect]
     Indication: HYPOVOLAEMIA
     Route: 042
     Dates: start: 20050228, end: 20050310
  19. NOREPINEPHRINE BITARTRATE [Suspect]
     Route: 042
     Dates: start: 20050226, end: 20050226
  20. NOVAMINSULFON [Suspect]
     Indication: PAIN
     Route: 042
     Dates: start: 20050228, end: 20050228
  21. NOVAMINSULFON [Suspect]
     Route: 042
     Dates: start: 20050302, end: 20050303
  22. NOVAMINSULFON [Suspect]
     Route: 042
     Dates: start: 20050304, end: 20050304
  23. TAZOBACTAM [Suspect]
     Indication: INFECTION
     Dosage: 3 X 4,5 MG
     Route: 042
     Dates: start: 20050228, end: 20050306
  24. MOVICOL NON-BI-DRUG [Suspect]
     Indication: CONSTIPATION
     Dosage: 3 X 1; 1X1;
     Route: 048
     Dates: start: 20050303
  25. NOVAMINSULFON NON-BI DRUG [Suspect]
     Indication: PAIN
     Route: 048
     Dates: start: 20050304, end: 20050304
  26. GENTAMICIN [Suspect]
     Indication: INFECTION PROPHYLAXIS
     Route: 042
     Dates: start: 20050304, end: 20050306
  27. GENTAMICIN [Suspect]
     Route: 042
     Dates: start: 20050313, end: 20050315
  28. FENISTIL NON-BI DRUG [Suspect]
     Indication: RASH
     Route: 042
     Dates: start: 20050304, end: 20050312
  29. FENISTIL NON-BI DRUG [Suspect]
     Dosage: 2 X 4MG
     Route: 042
     Dates: start: 20050315
  30. HYDROCORTISONE [Suspect]
     Indication: RASH
     Dosage: 100 MG
     Route: 042
     Dates: start: 20050304, end: 20050310
  31. HYDROCORTISONE [Suspect]
     Dosage: 300 MG
     Route: 042
     Dates: start: 20050317, end: 20050317
  32. LIPOVENOES 10% NON-BI DRUG [Suspect]
     Indication: PARENTERAL NUTRITION
     Route: 042
     Dates: start: 20050310, end: 20050310
  33. METOPROLOL TARTRATE [Suspect]
     Indication: HYPERTENSION
     Route: 042
     Dates: start: 20050310, end: 20050311
  34. ACETAMINOPHEN [Suspect]
     Indication: PAIN
     Route: 042
     Dates: start: 20050310, end: 20050312
  35. ACETAMINOPHEN [Suspect]
     Dosage: 3 X 1 G
     Route: 042
     Dates: start: 20050316, end: 20050316
  36. TRAPANAL [Concomitant]
     Indication: STUPOR
     Route: 042
  37. JONOSTERIL [Concomitant]
     Indication: ELECTROLYTE SUBSTITUTION THERAPY
     Route: 042
  38. DOLANTIN [Concomitant]
     Indication: PAIN
     Route: 042
  39. VOLUVEN [Concomitant]
     Indication: ELECTROLYTE SUBSTITUTION THERAPY
     Route: 042
  40. GLUCOSE [Concomitant]
     Indication: PARENTERAL NUTRITION
     Route: 042
  41. PREDNISOLONE [Concomitant]
     Indication: RASH
     Route: 042
  42. INTRAFUSIN [Concomitant]
     Indication: ELECTROLYTE SUBSTITUTION THERAPY
     Route: 042
  43. SODIUM CHLORIDE [Concomitant]
     Indication: ELECTROLYTE SUBSTITUTION THERAPY
     Route: 042
  44. ZIENAM [Concomitant]
     Indication: BRONCHITIS
     Dosage: 3X1 G
     Route: 042
     Dates: start: 20050313, end: 20050316
  45. RANITIDINE HCL [Concomitant]
     Indication: RASH
     Route: 042
  46. SUFENTANIL CITRATE [Concomitant]
     Indication: ANAESTHESIA
     Route: 042
  47. URBASON [Concomitant]
     Indication: RASH
     Route: 042
  48. PROPOFOL [Concomitant]
     Indication: ANAESTHESIA
  49. TRACUTIL [Concomitant]
     Indication: THERAPEUTIC PROCEDURE
     Route: 042
     Dates: start: 20050310, end: 20050313
  50. ESPUMISAN [Concomitant]
     Indication: FLATULENCE
     Dosage: 1X20 ML
     Route: 048
     Dates: start: 20050312, end: 20050314

REACTIONS (1)
  - TOXIC EPIDERMAL NECROLYSIS [None]
